FAERS Safety Report 5637349-0 (Version None)
Quarter: 2008Q1

REPORT INFORMATION
  Report Type: 
  Country: None (occurrence: None)
  Receive Date: 20080219
  Receipt Date: 20080206
  Transmission Date: 20080703
  Serious: Yes (Other)
  Sender: FDA-Public Use
  Company Number: CHPA2008US02220

PATIENT
  Sex: Female

DRUGS (2)
  1. GAS-X EXTRA STRENGTH SOFTGELS (NCH)(SIMETHICONE) SOFT GELATIN CAPSULE [Suspect]
     Indication: FLATULENCE
     Dosage: ORAL
     Route: 048
  2. CENTRUM (MINERALS NOS, VITAMINS NOS) [Concomitant]

REACTIONS (1)
  - RECTAL HAEMORRHAGE [None]
